FAERS Safety Report 22966933 (Version 3)
Quarter: 2023Q4

REPORT INFORMATION
  Report Type: Spontaneous
  Country: US (occurrence: US)
  Receive Date: 20230921
  Receipt Date: 20231010
  Transmission Date: 20240110
  Serious: Yes (Other)
  Sender: FDA-Public Use
  Company Number: US-PFIZER INC-202300305011

PATIENT
  Age: 71 Year
  Sex: Female
  Weight: 53.52 kg

DRUGS (1)
  1. METHOTREXATE SODIUM [Suspect]
     Active Substance: METHOTREXATE SODIUM
     Indication: Arthritis
     Dosage: 0.6 ML, WEEKLY

REACTIONS (8)
  - Back pain [Unknown]
  - Knee operation [Unknown]
  - Infection [Unknown]
  - Liver function test increased [Unknown]
  - Pain in extremity [Unknown]
  - Hypoaesthesia [Unknown]
  - Paraesthesia [Unknown]
  - Insomnia [Unknown]

NARRATIVE: CASE EVENT DATE: 20230109
